FAERS Safety Report 9146839 (Version 1)
Quarter: 2013Q1

REPORT INFORMATION
  Report Type: Spontaneous
  Country: US (occurrence: None)
  Receive Date: 20130208
  Receipt Date: 20130208
  Transmission Date: 20140127
  Serious: Yes (Death)
  Sender: FDA-Public Use
  Company Number: 2013020002

PATIENT
  Age: 38 Year
  Sex: Female

DRUGS (3)
  1. FENTANYL (FENTANYL) [Suspect]
  2. MORPHINE [Suspect]
  3. VENLAFAXINE [Suspect]

REACTIONS (4)
  - Drug abuse [None]
  - Incorrect route of drug administration [None]
  - Cardiac arrest [None]
  - Respiratory arrest [None]
